FAERS Safety Report 5839399-8 (Version None)
Quarter: 2008Q3

REPORT INFORMATION
  Report Type: 
  Country: None (occurrence: None)
  Receive Date: 20080806
  Receipt Date: 20080730
  Transmission Date: 20090109
  Serious: Yes (Other)
  Sender: FDA-Public Use
  Company Number: GXKR2008DE07109

PATIENT
  Sex: Female

DRUGS (2)
  1. MIRTAZAPIN HEXAL [Suspect]
     Dosage: ORAL
     Route: 048
  2. LIORESAL [Concomitant]

REACTIONS (1)
  - THROMBOSIS [None]
